FAERS Safety Report 14427502 (Version 2)
Quarter: 2022Q1

REPORT INFORMATION
  Report Type: Spontaneous
  Country: US (occurrence: US)
  Receive Date: 20180123
  Receipt Date: 20220224
  Transmission Date: 20220423
  Serious: No
  Sender: FDA-Public Use
  Company Number: US-IMPAX LABORATORIES, INC-2017-IPXL-03792

PATIENT
  Age: 54 Year
  Sex: Male
  Weight: 77.46 kg

DRUGS (9)
  1. RYTARY [Suspect]
     Active Substance: CARBIDOPA\LEVODOPA
     Indication: Parkinson^s disease
     Dosage: UNK
     Route: 048
  2. RYTARY [Suspect]
     Active Substance: CARBIDOPA\LEVODOPA
     Dosage: 48.75/195 MG, 2 CAPSULES EVERY 3 HOURS
     Route: 048
  3. RYTARY [Suspect]
     Active Substance: CARBIDOPA\LEVODOPA
     Dosage: 48.75/195 MG, 2 CAPSULES, 5X/DAY
     Route: 048
     Dates: start: 2016, end: 20201201
  4. RYTARY [Suspect]
     Active Substance: CARBIDOPA\LEVODOPA
     Dosage: 36.25/145MG, 2 CAPSULES, 5X/DAY
     Route: 048
     Dates: start: 20201208
  5. COMTAN [Concomitant]
     Active Substance: ENTACAPONE
     Indication: Parkinson^s disease
     Dosage: UNK
     Route: 065
  6. AMANTADINE [Concomitant]
     Active Substance: AMANTADINE
     Indication: Parkinson^s disease
     Dosage: 1 DOSAGE FORM, TID (5AM, 8AM, 11AM)
     Route: 065
     Dates: end: 202012
  7. ZOLPIDEM [Concomitant]
     Active Substance: ZOLPIDEM TARTRATE
     Indication: Sleep disorder
     Dosage: UNK
     Route: 065
  8. TEMAZEPAM [Concomitant]
     Active Substance: TEMAZEPAM
     Indication: Parkinson^s disease
     Dosage: 1 DOSAGE FORM, 1 /DAY AT 9PM
     Route: 065
  9. ONGENTYS [Concomitant]
     Active Substance: OPICAPONE
     Indication: Parkinson^s disease
     Dosage: 1 DOSAGE FORM, 1 /DAY AT 9PM
     Route: 065

REACTIONS (8)
  - Back pain [Not Recovered/Not Resolved]
  - Freezing phenomenon [Recovered/Resolved]
  - Therapeutic response shortened [Recovered/Resolved]
  - Dysphonia [Recovered/Resolved]
  - Gait inability [Recovered/Resolved]
  - Palpitations [Recovered/Resolved]
  - Hallucination, visual [Recovered/Resolved]
  - Dyskinesia [Recovered/Resolved]

NARRATIVE: CASE EVENT DATE: 20171211
